FAERS Safety Report 12338434 (Version 2)
Quarter: 2016Q2

REPORT INFORMATION
  Report Type: Spontaneous
  Country: JP (occurrence: JP)
  Receive Date: 20160505
  Receipt Date: 20160518
  Transmission Date: 20160815
  Serious: Yes (Other)
  Sender: FDA-Public Use
  Company Number: JP-BAYER-2016-084193

PATIENT
  Age: 60 Year
  Sex: Female

DRUGS (2)
  1. FASUDIL HYDROCHLORIDE [Concomitant]
     Active Substance: FASUDIL HYDROCHLORIDE
     Route: 013
  2. BAYASPIRIN [Suspect]
     Active Substance: ASPIRIN
     Route: 048

REACTIONS (3)
  - Cerebral infarction [None]
  - Haemorrhagic cerebral infarction [None]
  - Impaired healing [None]
